FAERS Safety Report 16351493 (Version 1)
Quarter: 2019Q2

REPORT INFORMATION
  Report Type: Spontaneous
  Country: CH (occurrence: CH)
  Receive Date: 20190524
  Receipt Date: 20190524
  Transmission Date: 20190711
  Serious: Yes (Other)
  Sender: FDA-Public Use
  Company Number: CH-ROCHE-2321245

PATIENT
  Sex: Female

DRUGS (15)
  1. OXALIPLATIN. [Concomitant]
     Active Substance: OXALIPLATIN
     Indication: RECTAL ADENOCARCINOMA
     Route: 065
     Dates: start: 201608, end: 201610
  2. FLUOROURACIL. [Concomitant]
     Active Substance: FLUOROURACIL
     Indication: RECTAL ADENOCARCINOMA
     Route: 065
     Dates: start: 201608, end: 201610
  3. FLUOROURACIL. [Concomitant]
     Active Substance: FLUOROURACIL
     Route: 065
     Dates: start: 201709, end: 201806
  4. FOLINIC ACID [Concomitant]
     Active Substance: LEUCOVORIN
     Indication: OFF LABEL USE
     Route: 065
     Dates: start: 201709, end: 201806
  5. FLUOROURACIL. [Concomitant]
     Active Substance: FLUOROURACIL
     Indication: OFF LABEL USE
     Route: 065
     Dates: start: 201611, end: 201705
  6. IRINOTECAN [Concomitant]
     Active Substance: IRINOTECAN
     Indication: OFF LABEL USE
  7. XELODA [Concomitant]
     Active Substance: CAPECITABINE
     Indication: OFF LABEL USE
     Route: 048
     Dates: start: 201810, end: 201811
  8. AVASTIN [Suspect]
     Active Substance: BEVACIZUMAB
     Indication: OFF LABEL USE
     Route: 042
     Dates: start: 201611, end: 201705
  9. FOLINIC ACID [Concomitant]
     Active Substance: LEUCOVORIN
     Indication: RECTAL ADENOCARCINOMA
     Route: 065
     Dates: start: 201608, end: 201610
  10. OXALIPLATIN. [Concomitant]
     Active Substance: OXALIPLATIN
     Indication: OFF LABEL USE
  11. AVASTIN [Suspect]
     Active Substance: BEVACIZUMAB
     Route: 042
     Dates: start: 201709, end: 201806
  12. IRINOTECAN [Concomitant]
     Active Substance: IRINOTECAN
     Indication: RECTAL ADENOCARCINOMA
     Route: 065
     Dates: start: 201709, end: 201806
  13. AVASTIN [Suspect]
     Active Substance: BEVACIZUMAB
     Indication: RECTAL ADENOCARCINOMA
     Route: 042
     Dates: start: 201608, end: 201610
  14. CALCIUM FOLINATE [Concomitant]
     Active Substance: LEUCOVORIN CALCIUM
     Indication: OFF LABEL USE
  15. CALCIUM FOLINATE [Concomitant]
     Active Substance: LEUCOVORIN CALCIUM
     Indication: RECTAL ADENOCARCINOMA
     Route: 065
     Dates: start: 201709, end: 201806

REACTIONS (4)
  - Intentional product use issue [Unknown]
  - Disease progression [Unknown]
  - Hypersensitivity [Unknown]
  - Off label use [Unknown]
